FAERS Safety Report 8545160-6 (Version None)
Quarter: 2012Q3

REPORT INFORMATION
  Report Type: 
  Country: None (occurrence: None)
  Receive Date: 20120727
  Receipt Date: 20120716
  Transmission Date: 20120928
  Serious: Yes (Hospitalization, Other)
  Sender: FDA-Public Use
  Company Number: US-ELI_LILLY_AND_COMPANY-US201207005117

PATIENT
  Age: 40 Year
  Sex: Male

DRUGS (3)
  1. HUMALOG [Suspect]
     Dosage: UNK, UNKNOWN
  2. THYROID THERAPY [Concomitant]
     Indication: THYROID DISORDER
     Dosage: UNK
  3. HUMALOG [Suspect]
     Indication: DIABETES MELLITUS
     Dosage: UNK, PRN
     Route: 058
     Dates: start: 20060101

REACTIONS (2)
  - UNDERDOSE [None]
  - DIABETIC KETOACIDOSIS [None]
